FAERS Safety Report 19530991 (Version 5)
Quarter: 2021Q4

REPORT INFORMATION
  Report Type: Spontaneous
  Country: JP (occurrence: JP)
  Receive Date: 20210714
  Receipt Date: 20211018
  Transmission Date: 20220303
  Serious: Yes (Hospitalization, Other)
  Sender: FDA-Public Use
  Company Number: JP-MSD-M2021-16801

PATIENT
  Age: 85 Year
  Sex: Male
  Weight: 72 kg

DRUGS (3)
  1. KEYTRUDA [Suspect]
     Active Substance: PEMBROLIZUMAB
     Indication: Non-small cell lung cancer stage IIIA
     Dosage: 200 MILLIGRAM, Q3W
     Route: 041
     Dates: start: 20190724, end: 20210526
  2. BISOPROLOL FUMARATE [Concomitant]
     Active Substance: BISOPROLOL FUMARATE
     Indication: Angina pectoris
     Dosage: 2.5 MILLIGRAM, QD
     Route: 048
  3. PLAVIX [Concomitant]
     Active Substance: CLOPIDOGREL BISULFATE
     Indication: Angina pectoris
     Dosage: 75 MILLIGRAM, QD
     Route: 048

REACTIONS (2)
  - Bell^s palsy [Recovered/Resolved]
  - Herpes simplex [Unknown]

NARRATIVE: CASE EVENT DATE: 20210101
